FAERS Safety Report 7201740-1 (Version None)
Quarter: 2010Q4

REPORT INFORMATION
  Report Type: 
  Country: None (occurrence: None)
  Receive Date: 20101216
  Receipt Date: 20101206
  Transmission Date: 20110411
  Serious: Yes (Hospitalization)
  Sender: FDA-Public Use
  Company Number: 2010P1003108

PATIENT
  Age: 25 Year
  Sex: Male

DRUGS (4)
  1. CLINDAMYCIN [Suspect]
     Indication: PERITONSILLAR ABSCESS
  2. CLINDAMYCIN [Suspect]
     Indication: PHARYNGITIS STREPTOCOCCAL
  3. METHYLPREDNISOLONE [Concomitant]
  4. PREV MEDS [Concomitant]

REACTIONS (1)
  - DRUG RASH WITH EOSINOPHILIA AND SYSTEMIC SYMPTOMS [None]
